FAERS Safety Report 9121428 (Version 2)
Quarter: 2013Q1

REPORT INFORMATION
  Report Type: Spontaneous
  Country: US (occurrence: US)
  Receive Date: 20130225
  Receipt Date: 20130329
  Transmission Date: 20140127
  Serious: Yes (Hospitalization)
  Sender: FDA-Public Use
  Company Number: US-PFIZER INC-2013066721

PATIENT
  Age: 64 Year
  Sex: Female

DRUGS (7)
  1. CAMPTOSAR [Suspect]
     Indication: COLON CANCER
     Dosage: 200 MG, (C1D1)
     Route: 042
     Dates: start: 20121202, end: 20130125
  2. LORAZEPAM [Concomitant]
     Indication: RESTLESSNESS
     Dosage: 0.5 MG, 4X/DAY  (Q 6 HRS)
  3. ZOFRAN [Concomitant]
     Indication: NAUSEA
     Dosage: 8 MG, AS NEEDED
  4. LIDODERM PATCH [Concomitant]
     Indication: PAIN
     Dosage: 12 HR ON/12 HR OFF
  5. DECADRON [Concomitant]
     Indication: NAUSEA
     Dosage: 4 MG, 2X/DAY
  6. LACTULOSE [Concomitant]
     Indication: CONSTIPATION
     Dosage: 1 DF, 1X/DAY (QN)
  7. BENADRYL [Concomitant]
     Indication: NAUSEA
     Dosage: AS NEEDED (Q 6 HRS)

REACTIONS (4)
  - Nausea [Recovering/Resolving]
  - Vomiting [Recovering/Resolving]
  - Disease progression [Unknown]
  - Colon cancer [Unknown]
